FAERS Safety Report 10279484 (Version 1)
Quarter: 2014Q2

REPORT INFORMATION
  Report Type: Spontaneous
  Country: IT (occurrence: None)
  Receive Date: 20140630
  Receipt Date: 20140630
  Transmission Date: 20141212
  Serious: Yes (Other)
  Sender: FDA-Public Use
  Company Number: AUR-APL-2014-06492

PATIENT
  Age: 52 Year
  Sex: Female

DRUGS (2)
  1. METFORMIN (METFORMIN) UNKNOWN, UNKNOWN [Suspect]
     Indication: DIABETES MELLITUS
     Route: 048
     Dates: start: 20110501, end: 20120504
  2. FERRO-GRAD [Suspect]
     Indication: PRODUCT USED FOR UNKNOWN INDICATION
     Route: 048
     Dates: start: 20110501, end: 20120504

REACTIONS (1)
  - Hypertransaminasaemia [None]
